FAERS Safety Report 10311290 (Version 1)
Quarter: 2014Q3

REPORT INFORMATION
  Report Type: Spontaneous
  Country: US (occurrence: None)
  Receive Date: 20140716
  Receipt Date: 20140716
  Transmission Date: 20150326
  Serious: Yes (Other)
  Sender: FDA-Public Use
  Company Number: None

PATIENT
  Age: 81 Year
  Sex: Female
  Weight: 58.97 kg

DRUGS (1)
  1. LEVOFLOXACIN 500 MG [Suspect]
     Active Substance: LEVOFLOXACIN
     Indication: URINARY TRACT INFECTION
     Dosage: TAKEN BY MOUTH
     Dates: start: 20140630, end: 20140702

REACTIONS (7)
  - Vomiting [None]
  - Confusional state [None]
  - Asthenia [None]
  - Abasia [None]
  - Movement disorder [None]
  - Diarrhoea [None]
  - Speech disorder [None]

NARRATIVE: CASE EVENT DATE: 20140702
